FAERS Safety Report 4566893-2 (Version None)
Quarter: 2005Q1

REPORT INFORMATION
  Report Type: 
  Country: None (occurrence: None)
  Receive Date: 20050201
  Receipt Date: 20030409
  Transmission Date: 20050727
  Serious: Yes (Other)
  Sender: FDA-Public Use
  Company Number: US-BRISTOL-MYERS SQUIBB COMPANY-12235156

PATIENT
  Age: 35 Year
  Sex: Female

DRUGS (9)
  1. STADOL [Suspect]
     Route: 045
     Dates: start: 19980213, end: 20010101
  2. CYCLOBENZAPRINE [Concomitant]
  3. ALPRAZOLAM [Concomitant]
  4. HYDROCODONE + ACETAMINOPHEN [Concomitant]
  5. PHENERGAN [Concomitant]
  6. CLOMIPRAMINE HCL [Concomitant]
  7. BUTALBITAL + CAFFEINE + ACETAMINOPHEN [Concomitant]
  8. PROPOXYPHENE NAPSYLATE [Concomitant]
  9. METHOCARBAMOL [Concomitant]

REACTIONS (1)
  - DEPENDENCE [None]
